FAERS Safety Report 5199852-X (Version None)
Quarter: 2007Q1

REPORT INFORMATION
  Report Type: 
  Country: None (occurrence: None)
  Receive Date: 20070103
  Receipt Date: 20070103
  Transmission Date: 20070707
  Serious: Yes (Other)
  Sender: FDA-Public Use
  Company Number: None

PATIENT
  Sex: Female
  Weight: 59.8748 kg

DRUGS (1)
  1. DIPENTUM [Suspect]
     Indication: COLITIS ULCERATIVE
     Dosage: 250 MG BID PO
     Route: 048
     Dates: start: 20061122, end: 20061221

REACTIONS (10)
  - ANXIETY [None]
  - CRYING [None]
  - DYSKINESIA [None]
  - FATIGUE [None]
  - IRRITABILITY [None]
  - MENTAL IMPAIRMENT [None]
  - MUSCULAR WEAKNESS [None]
  - NERVOUS SYSTEM DISORDER [None]
  - RESTLESSNESS [None]
  - TREMOR [None]
